FAERS Safety Report 8416138-8 (Version None)
Quarter: 2012Q2

REPORT INFORMATION
  Report Type: 
  Country: None (occurrence: None)
  Receive Date: 20120606
  Receipt Date: 20120601
  Transmission Date: 20120825
  Serious: Yes (Death, Congenital Anomaly, Other)
  Sender: FDA-Public Use
  Company Number: US-PFIZER INC-2012132547

PATIENT
  Sex: Male

DRUGS (2)
  1. SERTRALINE HYDROCHLORIDE [Suspect]
     Dosage: UNK
     Route: 064
  2. ZOLOFT [Suspect]
     Dosage: UNK
     Route: 064

REACTIONS (8)
  - MATERNAL EXPOSURE TIMING UNSPECIFIED [None]
  - CONGENITAL HEART VALVE DISORDER [None]
  - COARCTATION OF THE AORTA [None]
  - VENTRICULAR SEPTAL DEFECT [None]
  - ATRIOVENTRICULAR SEPTAL DEFECT [None]
  - TRANSPOSITION OF THE GREAT VESSELS [None]
  - VENTRICULAR HYPERTROPHY [None]
  - AORTA HYPOPLASIA [None]
